FAERS Safety Report 17799569 (Version 8)
Quarter: 2022Q1

REPORT INFORMATION
  Report Type: Report from Study
  Country: GB (occurrence: GB)
  Receive Date: 20200518
  Receipt Date: 20220322
  Transmission Date: 20220423
  Serious: Yes (Death, Hospitalization)
  Sender: FDA-Public Use
  Company Number: GB-ROCHE-2263583

PATIENT
  Age: 31 Year
  Sex: Female

DRUGS (47)
  1. PACLITAXEL [Suspect]
     Active Substance: PACLITAXEL
     Indication: Breast cancer
     Dosage: 183 MILLIGRAM, QW
     Route: 042
     Dates: start: 20150326, end: 20150812
  2. CAPECITABINE [Suspect]
     Active Substance: CAPECITABINE
     Indication: Breast cancer
     Dosage: 2000 MILLIGRAM, BID, START DATE: 19-MAR-2019 , STOP DATE
     Route: 048
     Dates: end: 20191224
  3. DOXORUBICIN [Suspect]
     Active Substance: DOXORUBICIN
     Indication: Breast cancer
     Dosage: 130 MILLIGRAM, Q3W, START DATE: 28-JAN-2020
     Route: 042
     Dates: end: 20200203
  4. PERTUZUMAB [Suspect]
     Active Substance: PERTUZUMAB
     Indication: Breast cancer
     Dosage: 420 MILLIGRAM, Q3W
     Route: 042
     Dates: start: 20150326, end: 20160211
  5. XELODA [Suspect]
     Active Substance: CAPECITABINE
     Indication: Breast cancer
     Dosage: 2000 MILLIGRAM, BID (0.5 DAY), START DATE: 19-MAR-2019
     Route: 048
     Dates: end: 20191224
  6. ADRIAMYCIN [Suspect]
     Active Substance: DOXORUBICIN HYDROCHLORIDE
     Indication: Breast cancer
     Dosage: 130 MILLIGRAM, Q3W, START DATE: 28-JAN-2020
     Route: 042
     Dates: end: 20200203
  7. ADO-TRASTUZUMAB EMTANSINE [Suspect]
     Active Substance: ADO-TRASTUZUMAB EMTANSINE
     Indication: Breast cancer
     Dosage: 350 MILLIGRAM, Q3W
     Route: 042
     Dates: start: 20160303, end: 20160421
  8. ADO-TRASTUZUMAB EMTANSINE [Suspect]
     Active Substance: ADO-TRASTUZUMAB EMTANSINE
     Dosage: 280 MILLIGRAM, Q3W
     Route: 042
     Dates: start: 20160421, end: 20161124
  9. ADO-TRASTUZUMAB EMTANSINE [Suspect]
     Active Substance: ADO-TRASTUZUMAB EMTANSINE
     Dosage: 290 MILLIGRAM, Q3W
     Route: 042
     Dates: start: 20170209, end: 20171123
  10. ADO-TRASTUZUMAB EMTANSINE [Suspect]
     Active Substance: ADO-TRASTUZUMAB EMTANSINE
     Dosage: 290 MILLIGRAM
     Route: 042
     Dates: start: 20180118, end: 20190220
  11. TRASTUZUMAB [Suspect]
     Active Substance: TRASTUZUMAB
     Indication: Breast cancer
     Dosage: 600 MILLIGRAM, Q3W
     Route: 058
     Dates: start: 20150326, end: 20160211
  12. BECLOMETHASONE [Concomitant]
     Active Substance: BECLOMETHASONE
     Indication: Asthma
     Dosage: 1 DOSAGE FORM 1 PUFF, START DATE: -JAN-2019
  13. CLARITHROMYCIN [Concomitant]
     Active Substance: CLARITHROMYCIN
     Dosage: 500 MILLIGRAM, BID, START DATE: 01-OCT-2017
     Route: 048
     Dates: end: 20171017
  14. ACETAMINOPHEN [Concomitant]
     Active Substance: ACETAMINOPHEN
     Dosage: 1000 GRAM
     Route: 048
     Dates: start: 201504
  15. ACETAMINOPHEN [Concomitant]
     Active Substance: ACETAMINOPHEN
     Dosage: 1000 MILLIGRAM
     Route: 048
     Dates: start: 20160111
  16. ACETAMINOPHEN [Concomitant]
     Active Substance: ACETAMINOPHEN
     Dosage: 1 GRAM, QID (0.25 DAY)
     Route: 048
     Dates: start: 20150918, end: 20150919
  17. CODEINE [Concomitant]
     Active Substance: CODEINE
     Dosage: 15 GRAM
     Route: 048
     Dates: start: 201504
  18. NAPROXEN [Concomitant]
     Active Substance: NAPROXEN
     Dosage: 250 MILLIGRAM, BID
     Route: 048
     Dates: start: 20170308, end: 20170309
  19. NAPROXEN [Concomitant]
     Active Substance: NAPROXEN
     Dosage: 500 MILLIGRAM, TID
     Route: 048
     Dates: start: 20160725, end: 201609
  20. NAPROXEN [Concomitant]
     Active Substance: NAPROXEN
     Dosage: 500 MILLIGRAM, BID
     Route: 048
     Dates: start: 20160227
  21. BENZYDAMINE [Concomitant]
     Active Substance: BENZYDAMINE
     Dosage: 20 MILLIGRAM
     Route: 065
     Dates: start: 201603
  22. LOPERAMIDE [Concomitant]
     Active Substance: LOPERAMIDE
     Dosage: 2 MILLIGRAM, TID
     Route: 048
     Dates: start: 20170307
  23. LOPERAMIDE [Concomitant]
     Active Substance: LOPERAMIDE
     Dosage: 2 MILLIGRAM
     Route: 048
     Dates: start: 201603
  24. IBUPROFEN [Concomitant]
     Active Substance: IBUPROFEN
     Dosage: 400 MILLIGRAM, TID
     Route: 048
     Dates: start: 20150509
  25. MORPHINE [Concomitant]
     Active Substance: MORPHINE
     Dosage: 10 MILLIGRAM
     Route: 048
     Dates: start: 20151109
  26. MORPHINE [Concomitant]
     Active Substance: MORPHINE
     Dosage: 50 MILLIGRAM
     Route: 048
     Dates: start: 20160516
  27. DULOXETINE [Concomitant]
     Active Substance: DULOXETINE
     Dosage: 60 MILLIGRAM, 0.04 DAY
     Route: 048
     Dates: start: 201603
  28. OMEPRAZOLE [Concomitant]
     Active Substance: OMEPRAZOLE
     Dosage: 20 MILLIGRAM, QD
     Route: 048
     Dates: start: 201505
  29. GABAPENTIN [Concomitant]
     Active Substance: GABAPENTIN
     Dosage: 300 MILLIGRAM, TID
     Route: 048
     Dates: start: 2013
  30. ZOPICLONE [Concomitant]
     Active Substance: ZOPICLONE
     Dosage: 7.5 MILLIGRAM, QD
     Route: 048
     Dates: end: 20160411
  31. DOCUSATE SODIUM [Concomitant]
     Active Substance: DOCUSATE SODIUM
     Dosage: 100 MILLIGRAM, TID
     Route: 048
     Dates: start: 20160516
  32. DOCUSATE [Concomitant]
     Active Substance: DOCUSATE
     Dosage: 200 MILLIGRAM, BID
     Route: 048
     Dates: start: 201603, end: 20160405
  33. CHLORHEXIDINE [Concomitant]
     Active Substance: CHLORHEXIDINE
     Indication: Mouth ulceration
     Dosage: 20 MILLIGRAM
     Route: 048
     Dates: start: 201603
  34. CHLORHEXIDINE [Concomitant]
     Active Substance: CHLORHEXIDINE
     Dosage: 10 MILLILITER, QID
     Route: 048
     Dates: start: 20190122
  35. CHLORHEXIDINE [Concomitant]
     Active Substance: CHLORHEXIDINE
     Dosage: 10 MILLILITER, BID
     Route: 048
     Dates: start: 20200205
  36. CHLORHEXIDINE [Concomitant]
     Active Substance: CHLORHEXIDINE
     Dosage: 10 MILLILITER, BID(MOUTH WASH )
     Route: 048
     Dates: start: 20200205, end: 20200918
  37. DEXAMETHASONE [Concomitant]
     Active Substance: DEXAMETHASONE
     Indication: Pain
     Dosage: 4 MILLIGRAM, BID, START DATE: 05-FEB-2020
     Route: 042
  38. DEXAMETHASONE [Concomitant]
     Active Substance: DEXAMETHASONE
     Indication: Pain
     Dosage: 2 MILLIGRAM, ONCE, START DATE: 17-JAN-2019
     Route: 048
     Dates: end: 20190122
  39. DALTEPARIN [Concomitant]
     Active Substance: DALTEPARIN
     Dosage: UNK, QD, START DATE: 16-JAN-2019
     Route: 058
     Dates: start: 20190116, end: 20190119
  40. DALTEPARIN [Concomitant]
     Active Substance: DALTEPARIN
     Dosage: UNK UNK, QD
     Route: 058
     Dates: start: 20200203, end: 20200206
  41. PIPERACILLIN SODIUM\TAZOBACTAM SODIUM [Concomitant]
     Active Substance: PIPERACILLIN SODIUM\TAZOBACTAM SODIUM
     Dosage: 4.5 GRAM
     Route: 042
     Dates: start: 20170524, end: 20170525
  42. PIPERACILLIN SODIUM\TAZOBACTAM SODIUM [Concomitant]
     Active Substance: PIPERACILLIN SODIUM\TAZOBACTAM SODIUM
     Dosage: 4.5 MILLIGRAM, TID, START DATE: 16-JAN-2019
     Route: 042
     Dates: end: 20190118
  43. PIPERACILLIN SODIUM\TAZOBACTAM SODIUM [Concomitant]
     Active Substance: PIPERACILLIN SODIUM\TAZOBACTAM SODIUM
     Dosage: 4.5 MILLIGRAM, TID
     Route: 042
     Dates: start: 20200204, end: 20200206
  44. PIPERACILLIN SODIUM\TAZOBACTAM SODIUM [Concomitant]
     Active Substance: PIPERACILLIN SODIUM\TAZOBACTAM SODIUM
     Dosage: 4.5 MILLIGRAM, TID
     Route: 017
     Dates: start: 20160304, end: 20160309
  45. PIPERACILLIN SODIUM\TAZOBACTAM SODIUM [Concomitant]
     Active Substance: PIPERACILLIN SODIUM\TAZOBACTAM SODIUM
     Dosage: 4.5 MILLIGRAM, TID
     Route: 042
     Dates: start: 20181220, end: 20181222
  46. ONDANSETRON [Concomitant]
     Active Substance: ONDANSETRON
     Dosage: 4 MILLIGRAM, BID, START DATE: 05-FEB-2020
     Route: 048
  47. ACETAMINOPHEN [Concomitant]
     Active Substance: ACETAMINOPHEN
     Dosage: 1 GRAM, QD, START DATE: 02-SEP-2017
     Route: 042
     Dates: end: 20170903

REACTIONS (8)
  - Disease progression [Fatal]
  - C-reactive protein increased [Recovered/Resolved]
  - Hepatic pain [Recovered/Resolved]
  - Malaise [Recovered/Resolved]
  - Periodontitis [Recovered/Resolved]
  - Body temperature increased [Recovered/Resolved]
  - Bronchitis [Recovered/Resolved]
  - Tooth infection [Recovered/Resolved]

NARRATIVE: CASE EVENT DATE: 20170524
